FAERS Safety Report 8430205-4 (Version None)
Quarter: 2012Q2

REPORT INFORMATION
  Report Type: 
  Country: None (occurrence: None)
  Receive Date: 20120612
  Receipt Date: 20120607
  Transmission Date: 20120825
  Serious: No
  Sender: FDA-Public Use
  Company Number: US-TEVA-342060USA

PATIENT
  Sex: Male

DRUGS (2)
  1. SINEMET [Concomitant]
     Indication: PARKINSON'S DISEASE
     Dosage: 250/100 MG
     Route: 048
     Dates: end: 20120605
  2. AZILECT [Suspect]
     Indication: PARKINSON'S DISEASE
     Dosage: 1 MILLIGRAM;
     Route: 048
     Dates: start: 20120531, end: 20120605

REACTIONS (6)
  - TREMOR [None]
  - DYSKINESIA [None]
  - SWELLING [None]
  - HEADACHE [None]
  - DIARRHOEA [None]
  - ABNORMAL DREAMS [None]
